FAERS Safety Report 24846513 (Version 1)
Quarter: 2025Q1

REPORT INFORMATION
  Report Type: Spontaneous
  Country: US (occurrence: US)
  Receive Date: 20250115
  Receipt Date: 20250115
  Transmission Date: 20250409
  Serious: No
  Sender: FENNEC PHARMACEUTICALS
  Company Number: US-FENNEC PHARMACEUTICALS, INC.-2024FEN00085

PATIENT
  Age: 61 Year
  Sex: Male

DRUGS (2)
  1. PEDMARK [Suspect]
     Active Substance: SODIUM THIOSULFATE
     Dosage: 46.8 G, 1X/WEEK
     Route: 042
  2. CISPLATIN [Suspect]
     Active Substance: CISPLATIN

REACTIONS (6)
  - Blood bilirubin increased [Unknown]
  - Blood ketone body increased [Unknown]
  - Glucose urine present [Unknown]
  - Bilirubin urine present [Unknown]
  - Neutrophil count decreased [Not Recovered/Not Resolved]
  - Off label use [Unknown]

NARRATIVE: CASE EVENT DATE: 20241201
